FAERS Safety Report 19185765 (Version 1)
Quarter: 2021Q2

REPORT INFORMATION
  Report Type: Spontaneous
  Country: US (occurrence: US)
  Receive Date: 20210427
  Receipt Date: 20210427
  Transmission Date: 20210717
  Serious: No
  Sender: FDA-Public Use
  Company Number: US-SA-2021SA084359

PATIENT
  Sex: Female

DRUGS (1)
  1. ZOLPIDEM TARTRATE. [Suspect]
     Active Substance: ZOLPIDEM TARTRATE
     Dosage: UNK
     Route: 065

REACTIONS (6)
  - Sleep disorder [Unknown]
  - Malaise [Unknown]
  - Mental disorder [Unknown]
  - Migraine [Unknown]
  - Eye irritation [Unknown]
  - Fatigue [Unknown]
